FAERS Safety Report 21700529 (Version 5)
Quarter: 2023Q2

REPORT INFORMATION
  Report Type: Spontaneous
  Country: TH (occurrence: TH)
  Receive Date: 20221208
  Receipt Date: 20230602
  Transmission Date: 20230721
  Serious: Yes (Hospitalization, Other)
  Sender: FDA-Public Use
  Company Number: TH-BAYER-2022P024895

PATIENT
  Age: 66 Year
  Sex: Female

DRUGS (1)
  1. GADOBUTROL [Suspect]
     Active Substance: GADOBUTROL
     Dosage: 10 ML, ONCE
     Dates: start: 20221128, end: 20221128

REACTIONS (12)
  - Respiratory failure [None]
  - Acute respiratory distress syndrome [Recovered/Resolved]
  - Renal failure [Recovered/Resolved]
  - Paraplegia [None]
  - Fatigue [None]
  - Wheezing [None]
  - Oxygen saturation decreased [None]
  - Restlessness [None]
  - Sputum abnormal [None]
  - Vomiting [None]
  - Blood pressure decreased [None]
  - Nausea [Recovered/Resolved]

NARRATIVE: CASE EVENT DATE: 20221128
